FAERS Safety Report 6261185-8 (Version None)
Quarter: 2009Q3

REPORT INFORMATION
  Report Type: 
  Country: None (occurrence: None)
  Receive Date: 20090707
  Receipt Date: 20090625
  Transmission Date: 20100115
  Serious: Yes (Other)
  Sender: FDA-Public Use
  Company Number: PAR_02888_2009

PATIENT
  Sex: Female

DRUGS (9)
  1. DOXYCYCLINE [Suspect]
     Indication: DRUG USE FOR UNKNOWN INDICATION
     Dosage: DF
     Dates: start: 20090217, end: 20090201
  2. PEGASYS [Suspect]
     Indication: HEPATITIS C
     Dosage: 180 ?G 1X WEEK SUBCUTAENOUS
     Route: 058
     Dates: start: 20081006
  3. METOPROLOL TARTRATE [Concomitant]
  4. AKARIN [Concomitant]
  5. KLONOPIN [Concomitant]
  6. APPETITE STIMULANTS [Concomitant]
  7. VALTREX [Concomitant]
  8. LEVOTHYROXINE SODIUM [Concomitant]
  9. UNSPECIFIED MEDICATION FOR ITCHING [Concomitant]

REACTIONS (8)
  - ANXIETY [None]
  - DECREASED APPETITE [None]
  - MALAISE [None]
  - PHOTOPHOBIA [None]
  - RASH ERYTHEMATOUS [None]
  - RASH GENERALISED [None]
  - SKIN BURNING SENSATION [None]
  - WHITE BLOOD CELL COUNT DECREASED [None]
